FAERS Safety Report 7747563-6 (Version None)
Quarter: 2011Q3

REPORT INFORMATION
  Report Type: 
  Country: None (occurrence: None)
  Receive Date: 20110909
  Receipt Date: 20110825
  Transmission Date: 20111222
  Serious: Yes (Hospitalization, Other)
  Sender: FDA-Public Use
  Company Number: AUR-APL-2011-04888

PATIENT
  Age: 70 Year
  Sex: Male
  Weight: 126 kg

DRUGS (4)
  1. METFORMIN HCL [Suspect]
     Indication: PRODUCT USED FOR UNKNOWN INDICATION
  2. BEVACIZUMAB (BEVACIZUMAB) [Suspect]
     Indication: ADRENOCORTICAL CARCINOMA
     Dosage: (5 MG/KG), INTRAVENOUS
     Route: 042
     Dates: start: 20110627, end: 20110711
  3. SUNITINIB MALATE [Suspect]
     Indication: ADRENAL CARCINOMA
     Dosage: 37.5 MG (37.5 MG, 1 IN 1 D), ORAL
     Route: 048
     Dates: start: 20110627, end: 20110724
  4. DYAZIDE [Suspect]
     Indication: PRODUCT USED FOR UNKNOWN INDICATION

REACTIONS (3)
  - DEHYDRATION [None]
  - RENAL FAILURE ACUTE [None]
  - HYPERURICAEMIA [None]
